FAERS Safety Report 21532472 (Version 1)
Quarter: 2022Q4

REPORT INFORMATION
  Report Type: Spontaneous
  Country: US (occurrence: None)
  Receive Date: 20221101
  Receipt Date: 20221101
  Transmission Date: 20230112
  Serious: No
  Sender: FDA-Public Use
  Company Number: 2022A350764

PATIENT
  Age: 703 Month
  Sex: Female
  Weight: 38.6 kg

DRUGS (1)
  1. SYMBICORT [Suspect]
     Active Substance: BUDESONIDE\FORMOTEROL FUMARATE DIHYDRATE
     Indication: Asthma
     Route: 055
     Dates: start: 2021

REACTIONS (5)
  - Weight abnormal [Unknown]
  - Product dose omission issue [Not Recovered/Not Resolved]
  - Product delivery mechanism issue [Unknown]
  - Wrong technique in device usage process [Unknown]
  - Device use issue [Unknown]

NARRATIVE: CASE EVENT DATE: 20221001
